FAERS Safety Report 22330826 (Version 1)
Quarter: 2023Q2

REPORT INFORMATION
  Report Type: Spontaneous
  Country: CN (occurrence: CN)
  Receive Date: 20230517
  Receipt Date: 20230517
  Transmission Date: 20230722
  Serious: Yes (Death, Hospitalization, Other)
  Sender: FDA-Public Use
  Company Number: CN-SUN PHARMACEUTICAL INDUSTRIES LTD-2023R1-381026

PATIENT
  Age: 20 Month
  Sex: Male

DRUGS (3)
  1. MIDAZOLAM [Suspect]
     Active Substance: MIDAZOLAM
     Indication: Seizure
     Dosage: 2 MILLIGRAM
     Route: 042
  2. PHENOBARBITAL [Suspect]
     Active Substance: PHENOBARBITAL
     Indication: Seizure
     Dosage: 0.1 GRAM
     Route: 030
  3. CHLORAL HYDRATE [Concomitant]
     Active Substance: CHLORAL HYDRATE
     Indication: Seizure
     Dosage: 5 MILLILITER
     Route: 054

REACTIONS (4)
  - Acute respiratory distress syndrome [Fatal]
  - Condition aggravated [Unknown]
  - Ventricular fibrillation [Unknown]
  - Viral sepsis [Unknown]
